FAERS Safety Report 6258561-6 (Version None)
Quarter: 2009Q3

REPORT INFORMATION
  Report Type: 
  Country: None (occurrence: None)
  Receive Date: 20090707
  Receipt Date: 20090629
  Transmission Date: 20100115
  Serious: Yes (Other)
  Sender: FDA-Public Use
  Company Number: IT-ROCHE-640827

PATIENT

DRUGS (4)
  1. TICLOPIDINE HCL [Suspect]
     Indication: THROMBOSIS PROPHYLAXIS
     Route: 065
  2. HEPARIN SODIUM [Suspect]
     Indication: THROMBOSIS PROPHYLAXIS
     Route: 065
  3. AMITRIPTYLINE [Suspect]
     Indication: ANTIDEPRESSANT THERAPY
     Route: 065
  4. ALLOPURINOL [Suspect]
     Indication: DRUG USE FOR UNKNOWN INDICATION
     Route: 065

REACTIONS (7)
  - ACTIVITIES OF DAILY LIVING IMPAIRED [None]
  - ANAEMIA [None]
  - GASTROINTESTINAL HAEMORRHAGE [None]
  - HAEMATURIA [None]
  - MELAENA [None]
  - SOMNOLENCE [None]
  - URTICARIA [None]
